FAERS Safety Report 11029514 (Version 1)
Quarter: 2015Q2

REPORT INFORMATION
  Report Type: Spontaneous
  Country: US (occurrence: None)
  Receive Date: 20150414
  Receipt Date: 20150414
  Transmission Date: 20150821
  Serious: No
  Sender: FDA-Public Use
  Company Number: None

PATIENT
  Age: 84 Year
  Sex: Female
  Weight: 53.52 kg

DRUGS (17)
  1. MILK THISTLE [Concomitant]
     Active Substance: MILK THISTLE
  2. VITAMIN E [Concomitant]
     Active Substance: .ALPHA.-TOCOPHEROL
  3. METHADONE [Suspect]
     Active Substance: METHADONE HYDROCHLORIDE
     Indication: PAIN
     Dosage: 1/2 TAB DAILY 2 X DAY
     Route: 048
     Dates: start: 20150322, end: 20150322
  4. LEVOTHYROXINE [Concomitant]
     Active Substance: LEVOTHYROXINE
  5. IRON [Concomitant]
     Active Substance: IRON
  6. AMLODIPINE [Concomitant]
     Active Substance: AMLODIPINE BESYLATE
  7. VITAMIN C [Concomitant]
     Active Substance: ASCORBIC ACID
  8. SIMVASTATIN. [Concomitant]
     Active Substance: SIMVASTATIN
  9. MULTIVITAMIN [Concomitant]
     Active Substance: VITAMINS
  10. FISH OIL [Concomitant]
     Active Substance: FISH OIL
  11. LISINOPRIL. [Concomitant]
     Active Substance: LISINOPRIL
  12. PERCOCET [Concomitant]
     Active Substance: ACETAMINOPHEN\OXYCODONE HYDROCHLORIDE
  13. HYALURONIC ACID [Concomitant]
     Active Substance: HYALURONIC ACID
  14. IBUPROFEN. [Concomitant]
     Active Substance: IBUPROFEN
  15. COLLAGEN [Concomitant]
     Active Substance: COLLAGEN
  16. VITAMIN D [Concomitant]
     Active Substance: CHOLECALCIFEROL
  17. TYLENOL [Concomitant]
     Active Substance: ACETAMINOPHEN

REACTIONS (1)
  - Pain [None]

NARRATIVE: CASE EVENT DATE: 20150322
